FAERS Safety Report 6260124-3 (Version None)
Quarter: 2009Q3

REPORT INFORMATION
  Report Type: 
  Country: None (occurrence: None)
  Receive Date: 20090708
  Receipt Date: 20090629
  Transmission Date: 20100115
  Serious: Yes (Other)
  Sender: FDA-Public Use
  Company Number: US-ELI_LILLY_AND_COMPANY-US200902003574

PATIENT
  Sex: Male

DRUGS (6)
  1. HUMULIN 70/30 [Suspect]
     Indication: TYPE 2 DIABETES MELLITUS
     Dates: start: 19960101, end: 19970101
  2. HUMULIN 70/30 [Suspect]
  3. HUMULIN R [Suspect]
     Indication: TYPE 2 DIABETES MELLITUS
     Dosage: UNK, UNK
     Dates: end: 20000101
  4. HUMULIN R [Suspect]
  5. HUMULIN N [Suspect]
     Indication: DIABETES MELLITUS
     Dosage: 20 U, EACH MORNING
     Route: 058
     Dates: start: 19960101
  6. HUMULIN N [Suspect]
     Dosage: 15 U, EACH EVENING
     Route: 058

REACTIONS (18)
  - ABDOMINAL DISTENSION [None]
  - BLOOD GLUCOSE DECREASED [None]
  - BLOOD GLUCOSE INCREASED [None]
  - BOWEL MOVEMENT IRREGULARITY [None]
  - CONSTIPATION [None]
  - DIABETES MELLITUS [None]
  - DYSPEPSIA [None]
  - FAECES HARD [None]
  - FLATULENCE [None]
  - GASTROINTESTINAL DISORDER [None]
  - HAEMORRHOIDS [None]
  - LACRIMATION INCREASED [None]
  - MUCOSAL INFLAMMATION [None]
  - NOCTURIA [None]
  - PANCREATITIS [None]
  - RHINORRHOEA [None]
  - URINE ANALYSIS ABNORMAL [None]
  - WEIGHT DECREASED [None]
